FAERS Safety Report 15050203 (Version 3)
Quarter: 2018Q3

REPORT INFORMATION
  Report Type: Spontaneous
  Country: US (occurrence: US)
  Receive Date: 20180622
  Receipt Date: 20180914
  Transmission Date: 20181010
  Serious: Yes (Other)
  Sender: FDA-Public Use
  Company Number: US-BAYER-2018-118799

PATIENT
  Age: 30 Year
  Sex: Female
  Weight: 95.69 kg

DRUGS (3)
  1. MIRENA [Suspect]
     Active Substance: LEVONORGESTREL
     Dosage: 20 MCG/24HR, CONT
     Route: 015
     Dates: start: 20180514, end: 20180621
  2. MIRENA [Suspect]
     Active Substance: LEVONORGESTREL
     Dosage: 20 MCG/24HR, CONT
     Route: 015
     Dates: start: 20180621
  3. ANTISEPTIC [Concomitant]
     Active Substance: CHLOROXYLENOL
     Indication: INFECTION PROPHYLAXIS
     Dosage: UNK
     Route: 061
     Dates: start: 20180621, end: 20180621

REACTIONS (9)
  - Menorrhagia [None]
  - Contraindicated device used [None]
  - Metrorrhagia [None]
  - Cervical dysplasia [None]
  - Dysmenorrhoea [None]
  - Medical device discomfort [None]
  - Procedural haemorrhage [None]
  - Ovarian cyst [None]
  - Device expulsion [None]

NARRATIVE: CASE EVENT DATE: 2018
